FAERS Safety Report 5479234-3 (Version None)
Quarter: 2007Q4

REPORT INFORMATION
  Report Type: 
  Country: None (occurrence: None)
  Receive Date: 20071008
  Receipt Date: 20071001
  Transmission Date: 20080405
  Serious: Yes (Other)
  Sender: FDA-Public Use
  Company Number: PHBS2007ES16210

PATIENT
  Age: 73 Year
  Sex: Female

DRUGS (2)
  1. ZOMETA [Suspect]
     Indication: MULTIPLE MYELOMA
     Dosage: 4 MG, QMO
     Route: 042
     Dates: start: 20020520
  2. REVLIMID [Concomitant]
     Dosage: 25 MG/D
     Route: 048
     Dates: start: 20070420

REACTIONS (1)
  - OSTEONECROSIS [None]
